FAERS Safety Report 23894517 (Version 1)
Quarter: 2024Q2

REPORT INFORMATION
  Report Type: Report from Study
  Country: BR (occurrence: BR)
  Receive Date: 20240524
  Receipt Date: 20240524
  Transmission Date: 20240716
  Serious: Yes (Other)
  Sender: FDA-Public Use
  Company Number: BR-ABBVIE-5771222

PATIENT
  Age: 70 Year
  Sex: Male
  Weight: 85 kg

DRUGS (2)
  1. SKYRIZI [Suspect]
     Active Substance: RISANKIZUMAB-RZAA
     Indication: Psoriasis
     Route: 058
     Dates: start: 20201203
  2. LACTULOSE [Concomitant]
     Active Substance: LACTULOSE
     Indication: Hepatic cirrhosis
     Dosage: ONE TABLESPOON
     Route: 048
     Dates: start: 2023

REACTIONS (4)
  - Hepatic cirrhosis [Not Recovered/Not Resolved]
  - Therapeutic response shortened [Unknown]
  - Pruritus [Recovered/Resolved]
  - Skin wound [Recovered/Resolved]

NARRATIVE: CASE EVENT DATE: 20221101
